FAERS Safety Report 19883893 (Version 1)
Quarter: 2021Q3

REPORT INFORMATION
  Report Type: Spontaneous
  Country: US (occurrence: US)
  Receive Date: 20210925
  Receipt Date: 20210925
  Transmission Date: 20211014
  Serious: Yes (Other)
  Sender: FDA-Public Use
  Company Number: None

PATIENT
  Age: 48 Year
  Sex: Male
  Weight: 125 kg

DRUGS (2)
  1. FLUCONAZOLE 200 MG [Concomitant]
     Active Substance: FLUCONAZOLE
     Dates: start: 20210918, end: 20210922
  2. BARICITINIB. [Suspect]
     Active Substance: BARICITINIB
     Indication: COVID-19
     Route: 048
     Dates: start: 20210915, end: 20210923

REACTIONS (4)
  - Aspartate aminotransferase increased [None]
  - Condition aggravated [None]
  - Sepsis [None]
  - Alanine aminotransferase increased [None]

NARRATIVE: CASE EVENT DATE: 20210923
